FAERS Safety Report 6743049-6 (Version None)
Quarter: 2010Q2

REPORT INFORMATION
  Report Type: 
  Country: None (occurrence: None)
  Receive Date: 20100527
  Receipt Date: 20100514
  Transmission Date: 20101027
  Serious: Yes (Other)
  Sender: FDA-Public Use
  Company Number: US-SHIRE-SPV1-2010-00959

PATIENT

DRUGS (1)
  1. VYVANSE [Suspect]
     Indication: ATTENTION DEFICIT/HYPERACTIVITY DISORDER
     Dosage: 30 MG, 1X/DAY:QD
     Route: 048

REACTIONS (6)
  - AGGRESSION [None]
  - DEPRESSED MOOD [None]
  - IRRITABILITY [None]
  - OFF LABEL USE [None]
  - SOMNAMBULISM [None]
  - SUICIDAL IDEATION [None]
